FAERS Safety Report 9417097 (Version 2)
Quarter: 2013Q3

REPORT INFORMATION
  Report Type: Spontaneous
  Country: US (occurrence: US)
  Receive Date: 20130724
  Receipt Date: 20130729
  Transmission Date: 20140515
  Serious: Yes (Other)
  Sender: FDA-Public Use
  Company Number: US-BAYER-2013-089216

PATIENT
  Sex: 0

DRUGS (2)
  1. ALEVE CAPLET [Suspect]
     Indication: PAIN IN EXTREMITY
     Dosage: 3 DF ON SUNDAY
  2. ALEVE CAPLET [Suspect]
     Indication: PAIN IN EXTREMITY
     Dosage: 2 OR 3 DF ON MONDAY

REACTIONS (3)
  - Herpes zoster [None]
  - Rash macular [None]
  - Back pain [None]
